FAERS Safety Report 22284772 (Version 1)
Quarter: 2023Q2

REPORT INFORMATION
  Report Type: Spontaneous
  Country: US (occurrence: None)
  Receive Date: 20230503
  Receipt Date: 20230503
  Transmission Date: 20230722
  Serious: No
  Sender: FDA-Public Use
  Company Number: None

PATIENT
  Age: 86 Year
  Sex: Female
  Weight: 53.61 kg

DRUGS (21)
  1. LENALIDOMIDE [Suspect]
     Active Substance: LENALIDOMIDE
     Indication: Diffuse large B-cell lymphoma
     Dosage: OTHER FREQUENCY : 21D ON 7D OFF;?
     Route: 048
  2. ALEVE [Concomitant]
     Active Substance: NAPROXEN SODIUM
  3. VITAMIN C [Concomitant]
     Active Substance: ASCORBIC ACID
  4. DIABETIC TUSSIN DM [Concomitant]
     Active Substance: DEXTROMETHORPHAN HYDROBROMIDE\GUAIFENESIN
  5. FUROSEMIDE [Concomitant]
  6. HYDROCORTISONE [Concomitant]
     Active Substance: HYDROCORTISONE
  7. IODINE [Concomitant]
     Active Substance: IODINE
  8. IODSORB [Concomitant]
  9. LORAZEPAM [Concomitant]
     Active Substance: LORAZEPAM
  10. WOMENS VITACRAVES [Concomitant]
  11. PROTOFOAM HC [Concomitant]
  12. SALAN-PAS [Concomitant]
  13. ASPIRIN [Concomitant]
     Active Substance: ASPIRIN
  14. TIZANIDINE [Concomitant]
     Active Substance: TIZANIDINE
  15. TRAMADOL [Concomitant]
     Active Substance: TRAMADOL
  16. TYLENOL [Concomitant]
     Active Substance: ACETAMINOPHEN
  17. VALACYCLOVIR [Concomitant]
     Active Substance: VALACYCLOVIR HYDROCHLORIDE
  18. VENELEX [Concomitant]
     Active Substance: BALSAM PERU\CASTOR OIL
  19. VICKS VAPORRUB [Concomitant]
  20. VITAMIN D NOS [Concomitant]
     Active Substance: VITAMIN D NOS
  21. VITAMIN B12 [Concomitant]
     Active Substance: CYANOCOBALAMIN

REACTIONS (1)
  - Hospice care [None]
